FAERS Safety Report 15708686 (Version 3)
Quarter: 2019Q1

REPORT INFORMATION
  Report Type: Spontaneous
  Country: US (occurrence: US)
  Receive Date: 20181211
  Receipt Date: 20190114
  Transmission Date: 20190417
  Serious: Yes (Hospitalization)
  Sender: FDA-Public Use
  Company Number: US-GLAXOSMITHKLINE-US2018221706

PATIENT
  Age: 68 Year
  Sex: Female

DRUGS (3)
  1. ARNUITY ELLIPTA [Suspect]
     Active Substance: FLUTICASONE FUROATE
     Indication: ASTHMA
  2. ARNUITY ELLIPTA [Suspect]
     Active Substance: FLUTICASONE FUROATE
     Indication: DYSPNOEA
     Dosage: 1 DF, QD
     Route: 055
     Dates: start: 20181204
  3. ARNUITY ELLIPTA [Suspect]
     Active Substance: FLUTICASONE FUROATE
     Indication: BRONCHITIS

REACTIONS (5)
  - Drug ineffective [Unknown]
  - Lip exfoliation [Unknown]
  - Fluid overload [Recovering/Resolving]
  - Dysgeusia [Recovered/Resolved]
  - Dry mouth [Unknown]

NARRATIVE: CASE EVENT DATE: 201812
